FAERS Safety Report 23903988 (Version 1)
Quarter: 2024Q2

REPORT INFORMATION
  Report Type: Spontaneous
  Country: DE (occurrence: DE)
  Receive Date: 20240527
  Receipt Date: 20240527
  Transmission Date: 20240716
  Serious: Yes (Hospitalization, Other)
  Sender: FDA-Public Use
  Company Number: DE-BRISTOL-MYERS SQUIBB COMPANY-2024-076445

PATIENT
  Age: 76 Year
  Sex: Female

DRUGS (2)
  1. TRIAMCINOLONE ACETONIDE [Suspect]
     Active Substance: TRIAMCINOLONE ACETONIDE
     Indication: Neuromyelitis optica spectrum disorder
     Dosage: EVERY 6 MONTHS, CUMULATIVE DOSE OF 80MG OVER 2 DAY
     Route: 037
     Dates: start: 201906
  2. TRIAMCINOLONE ACETONIDE [Suspect]
     Active Substance: TRIAMCINOLONE ACETONIDE
     Dosage: FIFTH INJECTION, 17TH INTRATHECAL ADMINISTRATION OF TRIAMCINOLONE
     Route: 037
     Dates: start: 20220421, end: 2023

REACTIONS (1)
  - Pleocytosis [Recovered/Resolved]

NARRATIVE: CASE EVENT DATE: 20220422
